FAERS Safety Report 20161798 (Version 1)
Quarter: 2021Q4

REPORT INFORMATION
  Report Type: Spontaneous
  Country: CN (occurrence: CN)
  Receive Date: 20211208
  Receipt Date: 20211208
  Transmission Date: 20220304
  Serious: Yes (Other)
  Sender: FDA-Public Use
  Company Number: CN-BAYER-2021A263234

PATIENT
  Age: 94 Year
  Sex: Male
  Weight: 50 kg

DRUGS (1)
  1. AVELOX [Suspect]
     Active Substance: MOXIFLOXACIN HYDROCHLORIDE
     Indication: Pneumonia
     Dosage: 0.4 G, QD
     Route: 048
     Dates: start: 20211110, end: 20211114

REACTIONS (6)
  - Epilepsy [Recovered/Resolved]
  - Lacunar infarction [None]
  - Cerebral ischaemia [None]
  - Cerebral atrophy [None]
  - White matter lesion [None]
  - Sinusitis [None]

NARRATIVE: CASE EVENT DATE: 20211113
